FAERS Safety Report 12628749 (Version 1)
Quarter: 2016Q3

REPORT INFORMATION
  Report Type: Report from Study
  Country: CN (occurrence: CN)
  Receive Date: 20160808
  Receipt Date: 20160808
  Transmission Date: 20161109
  Serious: Yes (Death)
  Sender: FDA-Public Use
  Company Number: CN-ROCHE-1808753

PATIENT
  Age: 63 Year
  Sex: Female

DRUGS (2)
  1. HERCEPTIN [Suspect]
     Active Substance: TRASTUZUMAB
     Indication: HER-2 POSITIVE BREAST CANCER
     Route: 041
     Dates: start: 20160222
  2. HERCEPTIN [Suspect]
     Active Substance: TRASTUZUMAB
     Route: 041

REACTIONS (3)
  - Multiple organ dysfunction syndrome [Fatal]
  - Metastasis [Fatal]
  - Infection [Fatal]

NARRATIVE: CASE EVENT DATE: 20160711
